FAERS Safety Report 15279764 (Version 1)
Quarter: 2018Q3

REPORT INFORMATION
  Report Type: Spontaneous
  Country: US (occurrence: US)
  Receive Date: 20180730
  Receipt Date: 20180730
  Transmission Date: 20181010
  Serious: Yes (Other)
  Sender: FDA-Public Use
  Company Number: None

PATIENT
  Age: 71 Year
  Sex: Male
  Weight: 101.25 kg

DRUGS (3)
  1. DORZOLAMIDE?TIMOLOL OPHTH SOLN [Concomitant]
     Dates: start: 19950101
  2. LATANOPROST. [Suspect]
     Active Substance: LATANOPROST
     Indication: GLAUCOMA
     Route: 047
     Dates: start: 20180725, end: 20180726
  3. BRIMONIDINE TART 0.15% OPHTH [Concomitant]
     Dates: start: 19950101

REACTIONS (1)
  - Instillation site pain [None]

NARRATIVE: CASE EVENT DATE: 20180726
